FAERS Safety Report 15946489 (Version 2)
Quarter: 2019Q2

REPORT INFORMATION
  Report Type: Report from Study
  Country: JP (occurrence: JP)
  Receive Date: 20190211
  Receipt Date: 20190429
  Transmission Date: 20190711
  Serious: Yes (Other)
  Sender: FDA-Public Use
  Company Number: JP-AEGERION PHARMACEUTICAL, INC-AEGR001659

PATIENT

DRUGS (6)
  1. METRELEPTIN SHIONOGI [Suspect]
     Active Substance: METRELEPTIN
     Dosage: 2.0 MG, QD
     Route: 058
     Dates: start: 20180117, end: 20180522
  2. METRELEPTIN SHIONOGI [Suspect]
     Active Substance: METRELEPTIN
     Dosage: 1.93 MG, QD
     Route: 058
     Dates: start: 20131107, end: 20131203
  3. METRELEPTIN SHIONOGI [Suspect]
     Active Substance: METRELEPTIN
     Dosage: 1.75 MG, QD
     Route: 058
     Dates: start: 20131204, end: 20180116
  4. METRELEPTIN SHIONOGI [Suspect]
     Active Substance: METRELEPTIN
     Dosage: 2.4 MG, QD
     Route: 058
     Dates: start: 20180523
  5. METRELEPTIN SHIONOGI [Suspect]
     Active Substance: METRELEPTIN
     Dosage: 1.35 MG, QD
     Route: 058
     Dates: start: 20131030, end: 20131106
  6. METRELEPTIN SHIONOGI [Suspect]
     Active Substance: METRELEPTIN
     Indication: PRODUCT USED FOR UNKNOWN INDICATION
     Dosage: 0.9 MG, QD
     Route: 058
     Dates: start: 20131023, end: 20131029

REACTIONS (9)
  - White blood cell count decreased [Recovered/Resolved]
  - Conjunctivitis [Recovering/Resolving]
  - Constipation [Not Recovered/Not Resolved]
  - Hepatic function abnormal [Not Recovered/Not Resolved]
  - Dermatitis contact [Recovering/Resolving]
  - Dermatitis contact [Recovered/Resolved]
  - Glucose tolerance impaired [Not Recovered/Not Resolved]
  - Dermatitis contact [Recovering/Resolving]
  - Upper respiratory tract infection [Recovered/Resolved]

NARRATIVE: CASE EVENT DATE: 20140519
